FAERS Safety Report 4566648-9 (Version None)
Quarter: 2005Q1

REPORT INFORMATION
  Report Type: 
  Country: None (occurrence: None)
  Receive Date: 20050201
  Receipt Date: 20041117
  Transmission Date: 20050727
  Serious: Yes (Hospitalization)
  Sender: FDA-Public Use
  Company Number: DE-MERCK-0411DEU00383

PATIENT
  Age: 71 Year
  Sex: Male

DRUGS (1)
  1. VIOXX [Suspect]
     Indication: OSTEOARTHRITIS
     Route: 048
     Dates: start: 20010101

REACTIONS (3)
  - DEEP VEIN THROMBOSIS [None]
  - PHLEBITIS [None]
  - SKIN ULCER [None]
